FAERS Safety Report 18651637 (Version 2)
Quarter: 2020Q4

REPORT INFORMATION
  Report Type: Spontaneous
  Country: US (occurrence: US)
  Receive Date: 20201223
  Receipt Date: 20201230
  Transmission Date: 20210114
  Serious: No
  Sender: FDA-Public Use
  Company Number: US-SA-2020SA362441

PATIENT

DRUGS (2)
  1. DUPIXENT [Suspect]
     Active Substance: DUPILUMAB
     Dosage: 300 MG; FREQUENCY: OTHER
     Route: 058
     Dates: start: 202005
  2. DUPIXENT [Suspect]
     Active Substance: DUPILUMAB
     Dosage: UNK; FREQUENCY: OTHER
     Route: 058
     Dates: start: 20200203, end: 2020

REACTIONS (1)
  - Product dose omission issue [Unknown]

NARRATIVE: CASE EVENT DATE: 202012
